FAERS Safety Report 5625948-1 (Version None)
Quarter: 2008Q1

REPORT INFORMATION
  Report Type: 
  Country: None (occurrence: None)
  Receive Date: 20080213
  Receipt Date: 20080213
  Transmission Date: 20080703
  Serious: No
  Sender: FDA-Public Use
  Company Number: None

PATIENT
  Age: 40 Year
  Sex: Male
  Weight: 87.0906 kg

DRUGS (3)
  1. NIASPAN [Suspect]
     Indication: BLOOD TRIGLYCERIDES
     Dosage: 30  ONCE A DAY  PO
     Route: 048
     Dates: start: 20080125, end: 20080208
  2. NIASPAN [Suspect]
     Indication: HIGH DENSITY LIPOPROTEIN
     Dosage: 30  ONCE A DAY  PO
     Route: 048
     Dates: start: 20080125, end: 20080208
  3. NIASPAN [Suspect]
     Indication: LOW DENSITY LIPOPROTEIN
     Dosage: 30  ONCE A DAY  PO
     Route: 048
     Dates: start: 20080125, end: 20080208

REACTIONS (3)
  - BURNING SENSATION [None]
  - ERYTHEMA [None]
  - ILL-DEFINED DISORDER [None]
